FAERS Safety Report 18468878 (Version 1)
Quarter: 2020Q4

REPORT INFORMATION
  Report Type: Spontaneous
  Country: US (occurrence: US)
  Receive Date: 20201105
  Receipt Date: 20201105
  Transmission Date: 20210114
  Serious: No
  Sender: FDA-Public Use
  Company Number: None

PATIENT
  Age: 45 Year
  Sex: Female
  Weight: 91.35 kg

DRUGS (11)
  1. IRON [Concomitant]
     Active Substance: IRON
  2. MELATONIN [Concomitant]
     Active Substance: MELATONIN
  3. BIOTIN [Concomitant]
     Active Substance: BIOTIN
  4. MULTI-VITAMIN [Concomitant]
     Active Substance: .ALPHA.-TOCOPHEROL ACETATE, DL-\ASCORBIC ACID\CYANOCOBALAMIN\FLUORIDE ION\FOLIC ACID\NIACIN\PYRIDOXINE\RIBOFLAVIN\THIAMINE\VITAMIN A\VITAMIN D
  5. MAGNESIUM [Concomitant]
     Active Substance: MAGNESIUM
  6. VITAMIN D3 [Concomitant]
     Active Substance: CHOLECALCIFEROL
  7. VITAMIN C [Concomitant]
     Active Substance: ASCORBIC ACID
  8. ASHWAGHANDA [Concomitant]
  9. CELECOXIB 200MG CAPSULES (Y200) [Suspect]
     Active Substance: CELECOXIB
     Indication: BACK PAIN
     Route: 048
     Dates: start: 20201031, end: 20201105
  10. COLLAGEN [Concomitant]
     Active Substance: COLLAGEN
  11. VITAMIN B6 [Concomitant]
     Active Substance: PYRIDOXINE HYDROCHLORIDE

REACTIONS (7)
  - Memory impairment [None]
  - Aphasia [None]
  - Tremor [None]
  - Balance disorder [None]
  - Dizziness [None]
  - Clumsiness [None]
  - Confusional state [None]

NARRATIVE: CASE EVENT DATE: 20201031
